FAERS Safety Report 4821526-2 (Version None)
Quarter: 2005Q4

REPORT INFORMATION
  Report Type: 
  Country: None (occurrence: None)
  Receive Date: 20051107
  Receipt Date: 20040711
  Transmission Date: 20060501
  Serious: Yes (Hospitalization, Disabling)
  Sender: FDA-Public Use
  Company Number: JP-GILEAD-2004-0007252

PATIENT
  Sex: Male

DRUGS (7)
  1. TENOFOVIR DISOPROXIL FUMARATE [Suspect]
     Indication: HIV INFECTION
     Route: 048
     Dates: start: 20020722, end: 20040726
  2. VIDEX [Suspect]
     Indication: HIV INFECTION
     Route: 048
     Dates: start: 20020722, end: 20040526
  3. REYATAZ [Suspect]
     Indication: HIV INFECTION
     Route: 048
     Dates: start: 20040119, end: 20040526
  4. KALETRA [Suspect]
     Indication: HIV INFECTION
     Route: 048
     Dates: start: 20020408, end: 20040119
  5. ZERIT [Suspect]
     Indication: HIV INFECTION
     Route: 048
     Dates: start: 20040727, end: 20040921
  6. CHRISTMASSIN-M [Concomitant]
     Dates: start: 20020401, end: 20030331
  7. NOVACT M [Concomitant]
     Dates: start: 20030401, end: 20040930

REACTIONS (5)
  - FANCONI SYNDROME ACQUIRED [None]
  - GASTRIC ULCER [None]
  - GASTRIC ULCER HAEMORRHAGE [None]
  - HYPERPHOSPHATAEMIA [None]
  - OSTEOMALACIA [None]
